FAERS Safety Report 10392046 (Version 4)
Quarter: 2014Q4

REPORT INFORMATION
  Report Type: Spontaneous
  Country: US (occurrence: US)
  Receive Date: 20140819
  Receipt Date: 20141007
  Transmission Date: 20150528
  Serious: Yes (Death, Hospitalization)
  Sender: FDA-Public Use
  Company Number: US-UNITED THERAPEUTICS-UNT-2014-005119

PATIENT
  Age: 71 Year
  Sex: Female
  Weight: 67.57 kg

DRUGS (3)
  1. REMODULIN [Suspect]
     Active Substance: TREPROSTINIL
     Indication: PULMONARY HYPERTENSION
  2. REMODULIN [Suspect]
     Active Substance: TREPROSTINIL
     Indication: COR PULMONALE CHRONIC
     Dosage: 80 ?G/KG, CONTINUING
     Route: 058
     Dates: start: 20111209
  3. REMODULIN [Suspect]
     Active Substance: TREPROSTINIL
     Indication: SCLERODERMA

REACTIONS (4)
  - Nausea [Fatal]
  - Dyspnoea [Fatal]
  - Decreased appetite [Fatal]
  - Failure to thrive [Fatal]

NARRATIVE: CASE EVENT DATE: 20140730
